FAERS Safety Report 6710160-5 (Version None)
Quarter: 2010Q2

REPORT INFORMATION
  Report Type: 
  Country: None (occurrence: None)
  Receive Date: 20100504
  Receipt Date: 20100427
  Transmission Date: 20101027
  Serious: Yes (Other)
  Sender: FDA-Public Use
  Company Number: US-BRISTOL-MYERS SQUIBB COMPANY-15060833

PATIENT
  Age: 67 Year
  Sex: Female

DRUGS (2)
  1. ONGLYZA [Suspect]
     Indication: DIABETES MELLITUS
     Dosage: TAKEN A MONTH 1DF=1TAB
     Route: 048
     Dates: start: 20100225
  2. SITAGLIPTIN PHOSPHATE [Concomitant]

REACTIONS (3)
  - ABDOMINAL PAIN [None]
  - HEPATIC ENZYME INCREASED [None]
  - LIPASE INCREASED [None]
